FAERS Safety Report 4922065-0 (Version None)
Quarter: 2006Q1

REPORT INFORMATION
  Report Type: 
  Country: None (occurrence: None)
  Receive Date: 20060224
  Receipt Date: 20060216
  Transmission Date: 20060701
  Serious: Yes (Hospitalization)
  Sender: FDA-Public Use
  Company Number: 2006CG00337

PATIENT
  Age: 82 Year
  Sex: Female

DRUGS (6)
  1. TENORMIN [Suspect]
     Route: 048
  2. SERESTA [Suspect]
     Route: 048
  3. KARDEGIC [Suspect]
     Route: 048
  4. VASTEN [Suspect]
     Route: 048
  5. PARIET [Suspect]
     Route: 048
  6. ALDACTAZINE [Suspect]
     Route: 048

REACTIONS (1)
  - PEMPHIGOID [None]
